FAERS Safety Report 6607546-6 (Version None)
Quarter: 2010Q1

REPORT INFORMATION
  Report Type: 
  Country: None (occurrence: None)
  Receive Date: 20100301
  Receipt Date: 20100218
  Transmission Date: 20100710
  Serious: Yes (Hospitalization, Other)
  Sender: FDA-Public Use
  Company Number: PHEH2010US02105

PATIENT
  Sex: Female

DRUGS (6)
  1. FAMVIR [Suspect]
     Indication: ANTIVIRAL PROPHYLAXIS
     Dosage: UNK
     Dates: start: 19980101
  2. FAMVIR [Suspect]
     Dosage: NO TREATMENT
     Dates: start: 20080701
  3. FAMVIR [Suspect]
     Dosage: UNK
  4. FAMVIR [Suspect]
     Dosage: NO TREATMENT
  5. FAMVIR [Suspect]
     Dosage: UNK
  6. ACYCLOVIR [Concomitant]

REACTIONS (2)
  - MENINGITIS VIRAL [None]
  - STRESS [None]
